FAERS Safety Report 4322136-6 (Version None)
Quarter: 2004Q1

REPORT INFORMATION
  Report Type: 
  Country: None (occurrence: None)
  Receive Date: 20040323
  Receipt Date: 20040312
  Transmission Date: 20041129
  Serious: Yes (Hospitalization, Disabling)
  Sender: FDA-Public Use
  Company Number: PHBS2004JP03396

PATIENT
  Age: 73 Year
  Sex: Male

DRUGS (8)
  1. NICARDIPINE HCL [Suspect]
     Indication: HYPERTENSION
     Dosage: 1.7 UG/KG
     Dates: start: 20020504, end: 20020510
  2. NITROGLYCERIN [Suspect]
     Indication: HYPERTENSION
     Dosage: 1.7 UG/KG
     Dates: start: 20020504, end: 20020510
  3. NIFEDIPINE [Concomitant]
     Indication: HYPERTENSION
     Dosage: 20 MG, QD
     Route: 048
     Dates: start: 20020509
  4. DOXAZOSIN MESYLATE [Concomitant]
     Indication: HYPERTENSION
     Dosage: 2 MG, QD
     Route: 048
     Dates: start: 20020509
  5. FUROSEMIDE [Concomitant]
     Dosage: 20 MG, QD
     Route: 048
     Dates: start: 20020501
  6. CARVEDILOL [Concomitant]
     Dosage: 5 MG, QD
     Route: 048
     Dates: start: 20020501
  7. HEPARIN [Concomitant]
     Indication: ANTICOAGULATION DRUG LEVEL
     Dates: start: 20020501
  8. DIURETICS [Concomitant]

REACTIONS (12)
  - ARTERIOSCLEROSIS [None]
  - BLOOD PRESSURE DECREASED [None]
  - BLOOD PRESSURE INCREASED [None]
  - CAROTID ARTERY STENOSIS [None]
  - DEPRESSED LEVEL OF CONSCIOUSNESS [None]
  - HEART RATE INCREASED [None]
  - HEMIPARESIS [None]
  - ISCHAEMIC CEREBRAL INFARCTION [None]
  - LACUNAR INFARCTION [None]
  - LEFT VENTRICULAR FAILURE [None]
  - PULMONARY CONGESTION [None]
  - SOMNOLENCE [None]
